FAERS Safety Report 6634498-5 (Version None)
Quarter: 2010Q1

REPORT INFORMATION
  Report Type: 
  Country: None (occurrence: None)
  Receive Date: 20100315
  Receipt Date: 20100303
  Transmission Date: 20100710
  Serious: Yes (Other)
  Sender: FDA-Public Use
  Company Number: JP-ROCHE-690130

PATIENT
  Sex: Female
  Weight: 60 kg

DRUGS (15)
  1. TOCILIZUMAB [Suspect]
     Indication: RHEUMATOID ARTHRITIS
     Route: 041
     Dates: start: 20090519, end: 20090519
  2. TOCILIZUMAB [Suspect]
     Route: 041
     Dates: start: 20090617, end: 20090617
  3. TOCILIZUMAB [Suspect]
     Route: 041
     Dates: start: 20090717, end: 20090717
  4. TOCILIZUMAB [Suspect]
     Route: 041
     Dates: start: 20090818, end: 20090818
  5. TOCILIZUMAB [Suspect]
     Route: 041
     Dates: start: 20090916, end: 20090916
  6. TOCILIZUMAB [Suspect]
     Route: 041
     Dates: start: 20091014, end: 20091014
  7. TOCILIZUMAB [Suspect]
     Route: 041
     Dates: start: 20091113, end: 20091113
  8. TOCILIZUMAB [Suspect]
     Route: 041
     Dates: start: 20091211, end: 20091211
  9. TOCILIZUMAB [Suspect]
     Route: 041
     Dates: start: 20100108, end: 20100108
  10. TOCILIZUMAB [Suspect]
     Route: 041
     Dates: start: 20100205
  11. ISCOTIN [Suspect]
     Indication: ANTIBIOTIC PROPHYLAXIS
     Dosage: DOSE FORM REPORTED: PERORAL AGENT
     Route: 048
     Dates: start: 20090520, end: 20091016
  12. AZULFIDINE [Concomitant]
     Route: 048
     Dates: start: 20071005
  13. RHEUMATREX [Concomitant]
     Route: 048
     Dates: start: 20071217
  14. ETODOLAC [Concomitant]
     Route: 048
     Dates: start: 20070101, end: 20090716
  15. FOLIAMIN [Concomitant]
     Dosage: DOSE FORM: PERORAL AGENT
     Route: 048

REACTIONS (2)
  - HAEMOLYTIC ANAEMIA [None]
  - HEPATIC FUNCTION ABNORMAL [None]
